FAERS Safety Report 10575807 (Version 1)
Quarter: 2014Q4

REPORT INFORMATION
  Report Type: Spontaneous
  Country: US (occurrence: None)
  Receive Date: 20141110
  Receipt Date: 20141110
  Transmission Date: 20150529
  Serious: Yes (Hospitalization)
  Sender: FDA-Public Use
  Company Number: None

PATIENT
  Age: 51 Year
  Sex: Male
  Weight: 79.5 kg

DRUGS (6)
  1. MULTIVITAMIN [Concomitant]
     Active Substance: VITAMINS
  2. ASPIRIN. [Concomitant]
     Active Substance: ASPIRIN
  3. CC-4047 (POMALIDOMIDE) CELGENE PHARMACEUTICALS [Suspect]
     Active Substance: POMALIDOMIDE
     Indication: SICKLE CELL ANAEMIA
     Route: 048
     Dates: start: 20120424
  4. MS CONTIN [Concomitant]
     Active Substance: MORPHINE SULFATE
  5. FOLIC ACID. [Concomitant]
     Active Substance: FOLIC ACID
  6. ROXICODONE [Concomitant]
     Active Substance: OXYCODONE HYDROCHLORIDE

REACTIONS (10)
  - Pain [None]
  - Pain in extremity [None]
  - Peripheral swelling [None]
  - Pyrexia [None]
  - C-reactive protein increased [None]
  - Haematocrit decreased [None]
  - Erythema [None]
  - Haemoglobin decreased [None]
  - Arthralgia [None]
  - Nausea [None]

NARRATIVE: CASE EVENT DATE: 20131220
